FAERS Safety Report 13827972 (Version 3)
Quarter: 2021Q3

REPORT INFORMATION
  Report Type: Spontaneous
  Country: TR (occurrence: TR)
  Receive Date: 20170803
  Receipt Date: 20210726
  Transmission Date: 20211014
  Serious: Yes (Hospitalization, Other)
  Sender: FDA-Public Use
  Company Number: TR-009507513-1708TUR000721

PATIENT
  Age: 68 Year
  Sex: Male

DRUGS (1)
  1. BCG LIVE [Suspect]
     Active Substance: BACILLUS CALMETTE-GUERIN SUBSTRAIN TICE LIVE ANTIGEN
     Indication: BLADDER TRANSITIONAL CELL CARCINOMA
     Dosage: SIX DOSES OF BCG WAS ADMINISTERED
     Route: 043

REACTIONS (4)
  - Acute kidney injury [Recovered/Resolved]
  - Glomerulonephritis rapidly progressive [Recovered/Resolved]
  - Anti-neutrophil cytoplasmic antibody positive vasculitis [Recovered/Resolved]
  - Polyarteritis nodosa [Recovered/Resolved]
